FAERS Safety Report 4745383-8 (Version None)
Quarter: 2005Q3

REPORT INFORMATION
  Report Type: 
  Country: None (occurrence: None)
  Receive Date: 20050815
  Receipt Date: 20050729
  Transmission Date: 20060218
  Serious: Yes (Death)
  Sender: FDA-Public Use
  Company Number: 2005S1007086

PATIENT
  Age: 61 Year
  Sex: Male
  Weight: 54.4316 kg

DRUGS (10)
  1. CLOZAPINE [Suspect]
     Indication: SCHIZOAFFECTIVE DISORDER
     Dosage: 200 MG; HS; PO
     Route: 048
     Dates: start: 20050710, end: 20050701
  2. ALBUTEROL SULFATE HFA [Concomitant]
  3. PREDNISONE [Concomitant]
  4. ATENOLOL [Concomitant]
  5. LORAZEPAM [Concomitant]
  6. QUETIAPINE FUMARATE [Concomitant]
  7. NICOTINE [Concomitant]
  8. VENLAFAXINE HCL [Concomitant]
  9. PARACETAMOL/HYDROCODONE BITARTRATE [Concomitant]
  10. IPRATROPIUM BROMIDE/SALBUTAMOL SULFATE [Concomitant]

REACTIONS (1)
  - DEATH [None]
